FAERS Safety Report 7652751-3 (Version None)
Quarter: 2011Q3

REPORT INFORMATION
  Report Type: 
  Country: None (occurrence: None)
  Receive Date: 20110803
  Receipt Date: 20110722
  Transmission Date: 20111222
  Serious: Yes (Other)
  Sender: FDA-Public Use
  Company Number: JP-JNJFOC-20110800029

PATIENT
  Age: 48 Year
  Sex: Male

DRUGS (7)
  1. SILECE [Concomitant]
     Route: 048
  2. RISPERIDONE [Suspect]
     Indication: PRODUCT USED FOR UNKNOWN INDICATION
     Route: 048
     Dates: start: 20110624
  3. RISPERDAL CONSTA [Suspect]
     Route: 030
     Dates: start: 20110512
  4. DIOVAN [Concomitant]
     Route: 048
  5. NITRAZEPAM [Concomitant]
     Route: 048
  6. NORVASC [Concomitant]
     Route: 048
  7. RISPERDAL CONSTA [Suspect]
     Indication: PRODUCT USED FOR UNKNOWN INDICATION
     Route: 030
     Dates: start: 20110329

REACTIONS (1)
  - EYELID PTOSIS [None]
